FAERS Safety Report 9004455 (Version 1)
Quarter: 2013Q1

REPORT INFORMATION
  Report Type: Spontaneous
  Country: US (occurrence: None)
  Receive Date: 20130103
  Receipt Date: 20130103
  Transmission Date: 20140127
  Serious: Yes (Other)
  Sender: FDA-Public Use
  Company Number: None

PATIENT
  Age: 59 Year
  Sex: Male
  Weight: 97.52 kg

DRUGS (1)
  1. CIPRO HC OTIC [Suspect]
     Dosage: 3 DROPS 2 / DAY INTRAOCULAR
     Route: 031
     Dates: start: 20121224, end: 20121228

REACTIONS (3)
  - Headache [None]
  - Feeling abnormal [None]
  - Nervous system disorder [None]
